FAERS Safety Report 5520664-9 (Version None)
Quarter: 2007Q4

REPORT INFORMATION
  Report Type: 
  Country: None (occurrence: None)
  Receive Date: 20071119
  Receipt Date: 20071105
  Transmission Date: 20080405
  Serious: Yes (Other)
  Sender: FDA-Public Use
  Company Number: TR-PFIZER INC-2007094144

PATIENT

DRUGS (1)
  1. GABAPENTIN [Suspect]
     Route: 048

REACTIONS (4)
  - ERYTHEMA [None]
  - EYE OEDEMA [None]
  - FACE OEDEMA [None]
  - RASH [None]
